FAERS Safety Report 7768802-1 (Version None)
Quarter: 2011Q3

REPORT INFORMATION
  Report Type: 
  Country: None (occurrence: None)
  Receive Date: 20110920
  Receipt Date: 20110908
  Transmission Date: 20111222
  Serious: Yes (Other)
  Sender: FDA-Public Use
  Company Number: US-006238

PATIENT
  Age: 40 Year
  Sex: Female
  Weight: 58.9676 kg

DRUGS (4)
  1. PROGESTERONE [Suspect]
     Indication: IN VITRO FERTILISATION
     Dosage: (100 MG TID VAGINAL)
     Route: 067
     Dates: start: 20110508, end: 20110531
  2. FOLLICLE STIMULATING HORMONE, RECOMBINANT [Concomitant]
  3. CHORIONIC GONADOTROPIN [Concomitant]
  4. LUTEINIZING HORMONE-RELEASING HORMONE [Concomitant]

REACTIONS (5)
  - ABORTION SPONTANEOUS [None]
  - ERYTHEMA [None]
  - PRURITUS [None]
  - SKIN SWELLING [None]
  - MATERNAL EXPOSURE DURING PREGNANCY [None]
